FAERS Safety Report 12698590 (Version 1)
Quarter: 2016Q3

REPORT INFORMATION
  Report Type: Spontaneous
  Country: US (occurrence: US)
  Receive Date: 20160830
  Receipt Date: 20160830
  Transmission Date: 20161109
  Serious: No
  Sender: FDA-Public Use
  Company Number: US-BAYER-2016-168697

PATIENT
  Age: 65 Year
  Sex: Female
  Weight: 71.2 kg

DRUGS (1)
  1. MIRALAX [Suspect]
     Active Substance: POLYETHYLENE GLYCOL 3350
     Indication: GASTROINTESTINAL DISORDER
     Dosage: 1 DF, ONCE
     Dates: start: 20160827, end: 20160827

REACTIONS (3)
  - Abdominal discomfort [Recovered/Resolved]
  - Product use issue [None]
  - Nausea [Recovered/Resolved]

NARRATIVE: CASE EVENT DATE: 20160827
